FAERS Safety Report 6481513-8 (Version None)
Quarter: 2009Q4

REPORT INFORMATION
  Report Type: 
  Country: None (occurrence: None)
  Receive Date: 20091123
  Receipt Date: 20090824
  Transmission Date: 20100525
  Serious: No
  Sender: FDA-Public Use
  Company Number: 8050869

PATIENT
  Age: 80 Year
  Sex: Male
  Weight: 94.5 kg

DRUGS (4)
  1. CIMZIA [Suspect]
     Indication: CROHN'S DISEASE
     Dosage: 400 MG SC
     Route: 058
     Dates: start: 20090805
  2. CODEINE [Concomitant]
  3. IMODIUM [Concomitant]
  4. PREDNISONE [Concomitant]

REACTIONS (2)
  - DIARRHOEA [None]
  - FLATULENCE [None]
